FAERS Safety Report 8029063-1 (Version None)
Quarter: 2012Q1

REPORT INFORMATION
  Report Type: 
  Country: None (occurrence: None)
  Receive Date: 20120106
  Receipt Date: 20120102
  Transmission Date: 20120608
  Serious: Yes (Life-Threatening)
  Sender: FDA-Public Use
  Company Number: IT-ASTRAZENECA-2012SE00212

PATIENT
  Age: 30029 Day
  Sex: Male

DRUGS (10)
  1. ATEM [Concomitant]
     Route: 055
  2. POTASSIUM CHLORIDE [Concomitant]
     Dosage: 600 MG TABLET, PROLONGED RELEASE
     Route: 048
  3. MICONAZOLE [Concomitant]
     Dosage: 2% ORAL GEL ,80G^ TUBE^
     Route: 061
  4. LASIX [Concomitant]
     Dosage: 20 MG\2ML
     Route: 042
  5. BECLOMETHASONE DIPROPIONATE [Concomitant]
     Dosage: 0,8 MG\2ML SUSPENSION TO BE NEBULIZED
     Route: 055
  6. ROCEPHIN [Concomitant]
     Route: 042
  7. ALBUTEROL SULFATE [Concomitant]
     Dosage: 0,5% SOLUTION TO BE NEBULIZED
     Route: 055
  8. MERREM [Suspect]
     Indication: URINARY TRACT INFECTION PSEUDOMONAL
     Route: 042
     Dates: start: 20111214, end: 20111214
  9. MEPRAL [Concomitant]
     Dosage: 40 MG POWDER, INFUSION SOLUTION
     Route: 042
  10. METHYLPREDNISOLONE [Concomitant]
     Dosage: 20 MG/ML POWDER
     Route: 030

REACTIONS (2)
  - DYSPNOEA [None]
  - LARYNGEAL OEDEMA [None]
